FAERS Safety Report 20307233 (Version 5)
Quarter: 2022Q4

REPORT INFORMATION
  Report Type: Other
  Country: CA (occurrence: CA)
  Receive Date: 20220107
  Receipt Date: 20221218
  Transmission Date: 20230113
  Serious: Yes (Death, Other)
  Sender: FDA-Public Use
  Company Number: CA-CELLTRION INC.-2020CA035182

PATIENT

DRUGS (105)
  1. TRASTUZUMAB [Suspect]
     Active Substance: TRASTUZUMAB
     Indication: Invasive ductal breast carcinoma
     Dosage: UNK
     Route: 065
  2. TRASTUZUMAB [Suspect]
     Active Substance: TRASTUZUMAB
     Dosage: UNK, CYCLICAL
     Route: 065
  3. TRASTUZUMAB [Suspect]
     Active Substance: TRASTUZUMAB
     Dosage: UNK
     Route: 065
  4. TRASTUZUMAB [Suspect]
     Active Substance: TRASTUZUMAB
     Dosage: UNK
     Route: 065
  5. ADRIAMYCIN [Suspect]
     Active Substance: DOXORUBICIN HYDROCHLORIDE
     Indication: Invasive ductal breast carcinoma
     Dosage: 35 MG/M2, CYCLICAL
     Route: 065
  6. ADRIAMYCIN [Suspect]
     Active Substance: DOXORUBICIN HYDROCHLORIDE
     Dosage: 35 MG/M2, CYCLICAL
     Route: 051
  7. ADRIAMYCIN [Suspect]
     Active Substance: DOXORUBICIN HYDROCHLORIDE
     Dosage: 35 MG/M2, CYCLICAL
     Route: 065
  8. ADRIAMYCIN [Suspect]
     Active Substance: DOXORUBICIN HYDROCHLORIDE
     Dosage: 35 MG/M2, CYCLICAL
     Route: 042
  9. ADRIAMYCIN [Suspect]
     Active Substance: DOXORUBICIN HYDROCHLORIDE
     Dosage: UNK
     Route: 042
  10. CISPLATIN [Suspect]
     Active Substance: CISPLATIN
     Indication: Recurrent cancer
     Dosage: UNK, CYCLICAL
     Route: 042
  11. CISPLATIN [Suspect]
     Active Substance: CISPLATIN
     Indication: Metastases to skin
     Dosage: UNK
     Route: 042
  12. CISPLATIN [Suspect]
     Active Substance: CISPLATIN
     Indication: Metastases to lung
  13. CISPLATIN [Suspect]
     Active Substance: CISPLATIN
     Indication: Metastases to central nervous system
  14. CISPLATIN [Suspect]
     Active Substance: CISPLATIN
     Indication: Choriocarcinoma
  15. CISPLATIN [Suspect]
     Active Substance: CISPLATIN
     Indication: Chemotherapy
  16. CISPLATIN [Suspect]
     Active Substance: CISPLATIN
     Indication: Choriocarcinoma
     Dosage: UNK
     Route: 065
  17. CISPLATIN [Suspect]
     Active Substance: CISPLATIN
     Dosage: UNK, CYCLICAL
     Route: 065
  18. CISPLATIN [Suspect]
     Active Substance: CISPLATIN
     Dosage: UNK, CYCLICAL
     Route: 042
  19. COSMEGEN [Suspect]
     Active Substance: DACTINOMYCIN
     Indication: Choriocarcinoma
     Dosage: UNK
     Route: 065
  20. COSMEGEN [Suspect]
     Active Substance: DACTINOMYCIN
     Indication: Recurrent cancer
     Dosage: UNK, CYCLICAL
     Route: 065
  21. COSMEGEN [Suspect]
     Active Substance: DACTINOMYCIN
     Indication: Metastases to skin
     Dosage: UNK
     Route: 042
  22. COSMEGEN [Suspect]
     Active Substance: DACTINOMYCIN
     Indication: Metastases to lung
  23. COSMEGEN [Suspect]
     Active Substance: DACTINOMYCIN
     Indication: Metastases to central nervous system
  24. COSMEGEN [Suspect]
     Active Substance: DACTINOMYCIN
     Indication: Choriocarcinoma
     Dosage: UNK UNK, CYCLIC
     Route: 042
  25. COSMEGEN [Suspect]
     Active Substance: DACTINOMYCIN
     Indication: Recurrent cancer
     Dosage: UNK
     Route: 042
  26. COSMEGEN [Suspect]
     Active Substance: DACTINOMYCIN
     Indication: Metastases to skin
  27. COSMEGEN [Suspect]
     Active Substance: DACTINOMYCIN
     Indication: Metastases to lung
  28. COSMEGEN [Suspect]
     Active Substance: DACTINOMYCIN
     Indication: Metastases to central nervous system
  29. COSMEGEN [Suspect]
     Active Substance: DACTINOMYCIN
     Indication: Chemotherapy
  30. CYCLOPHOSPHAMIDE [Suspect]
     Active Substance: CYCLOPHOSPHAMIDE
     Indication: Choriocarcinoma
     Route: 065
  31. CYCLOPHOSPHAMIDE [Suspect]
     Active Substance: CYCLOPHOSPHAMIDE
     Indication: Metastatic choriocarcinoma
  32. DACTINOMYCIN [Suspect]
     Active Substance: DACTINOMYCIN
     Indication: Choriocarcinoma
     Dosage: UNK, CYCLICAL
     Route: 065
  33. DACTINOMYCIN [Suspect]
     Active Substance: DACTINOMYCIN
     Dosage: UNK
     Route: 065
  34. DACTINOMYCIN [Suspect]
     Active Substance: DACTINOMYCIN
     Dosage: UNK
     Route: 065
  35. DOXORUBICIN [Suspect]
     Active Substance: DOXORUBICIN
     Indication: Recurrent cancer
     Route: 042
  36. DOXORUBICIN [Suspect]
     Active Substance: DOXORUBICIN
     Indication: Metastases to skin
  37. DOXORUBICIN [Suspect]
     Active Substance: DOXORUBICIN
     Indication: Invasive ductal breast carcinoma
  38. DOXORUBICIN [Suspect]
     Active Substance: DOXORUBICIN
     Indication: Metastases to central nervous system
  39. DOCETAXEL [Suspect]
     Active Substance: DOCETAXEL
     Indication: Invasive ductal breast carcinoma
     Route: 065
  40. DOXORUBICIN HYDROCHLORIDE [Suspect]
     Active Substance: DOXORUBICIN HYDROCHLORIDE
     Indication: Invasive ductal breast carcinoma
     Route: 065
  41. DOXORUBICIN [Suspect]
     Active Substance: DOXORUBICIN
     Indication: Invasive ductal breast carcinoma
     Route: 065
  42. DOXORUBICIN [Suspect]
     Active Substance: DOXORUBICIN
     Indication: Choriocarcinoma
     Dosage: 35 MG/M2
     Route: 065
  43. DOXORUBICIN [Suspect]
     Active Substance: DOXORUBICIN
     Indication: Invasive ductal breast carcinoma
     Dosage: 35 MG/M2, Q4WEEKS
     Route: 042
  44. DOXORUBICIN [Suspect]
     Active Substance: DOXORUBICIN
     Indication: Choriocarcinoma
     Dosage: UNK
     Route: 042
  45. DOXORUBICIN [Suspect]
     Active Substance: DOXORUBICIN
     Indication: Recurrent cancer
  46. DOXORUBICIN HYDROCHLORIDE [Suspect]
     Active Substance: DOXORUBICIN HYDROCHLORIDE
     Indication: Choriocarcinoma
     Dosage: UNK
     Route: 065
  47. DOXORUBICIN HYDROCHLORIDE [Suspect]
     Active Substance: DOXORUBICIN HYDROCHLORIDE
     Indication: Invasive ductal breast carcinoma
     Dosage: UNK
     Route: 065
  48. DOXORUBICIN HYDROCHLORIDE [Suspect]
     Active Substance: DOXORUBICIN HYDROCHLORIDE
     Indication: Recurrent cancer
     Dosage: 35 MG/M2, CYCLICAL
     Route: 065
  49. DOXORUBICIN HYDROCHLORIDE [Suspect]
     Active Substance: DOXORUBICIN HYDROCHLORIDE
     Indication: Metastases to skin
  50. DOXORUBICIN HYDROCHLORIDE [Suspect]
     Active Substance: DOXORUBICIN HYDROCHLORIDE
     Indication: Metastases to central nervous system
  51. ETOPOSIDE [Suspect]
     Active Substance: ETOPOSIDE
     Indication: Metastatic neoplasm
     Dosage: UNK, CYCLICAL
     Route: 065
  52. ETOPOSIDE [Suspect]
     Active Substance: ETOPOSIDE
     Indication: Choriocarcinoma
     Dosage: UNK
     Route: 065
  53. ETOPOSIDE [Suspect]
     Active Substance: ETOPOSIDE
     Indication: Recurrent cancer
  54. ETOPOSIDE [Suspect]
     Active Substance: ETOPOSIDE
     Indication: Metastases to skin
  55. ETOPOSIDE [Suspect]
     Active Substance: ETOPOSIDE
     Indication: Metastases to lung
  56. ETOPOSIDE [Suspect]
     Active Substance: ETOPOSIDE
     Indication: Metastases to central nervous system
  57. ETOPOSIDE [Suspect]
     Active Substance: ETOPOSIDE
     Indication: Recurrent cancer
     Dosage: UNK
     Route: 065
  58. ETOPOSIDE [Suspect]
     Active Substance: ETOPOSIDE
     Indication: Metastatic neoplasm
  59. ETOPOSIDE [Suspect]
     Active Substance: ETOPOSIDE
     Indication: Metastases to skin
  60. ETOPOSIDE [Suspect]
     Active Substance: ETOPOSIDE
     Indication: Metastases to lung
  61. ETOPOSIDE [Suspect]
     Active Substance: ETOPOSIDE
     Indication: Metastases to central nervous system
  62. ETOPOSIDE [Suspect]
     Active Substance: ETOPOSIDE
     Indication: Choriocarcinoma
  63. GEMCITABINE HYDROCHLORIDE [Suspect]
     Active Substance: GEMCITABINE HYDROCHLORIDE
     Indication: Choriocarcinoma
     Route: 065
  64. GEMCITABINE HYDROCHLORIDE [Suspect]
     Active Substance: GEMCITABINE HYDROCHLORIDE
     Indication: Recurrent cancer
     Route: 065
  65. GEMCITABINE [Suspect]
     Active Substance: GEMCITABINE
     Indication: Choriocarcinoma
     Dosage: UNK
     Route: 065
  66. GEMCITABINE [Suspect]
     Active Substance: GEMCITABINE
     Indication: Recurrent cancer
     Dosage: UNK, CYCLICAL
     Route: 065
  67. METHOTREXATE [Suspect]
     Active Substance: METHOTREXATE
     Indication: Choriocarcinoma
     Dosage: UNK, CYCLICAL
     Route: 065
  68. METHOTREXATE [Suspect]
     Active Substance: METHOTREXATE
     Indication: Recurrent cancer
     Dosage: UNK
     Route: 065
  69. METHOTREXATE [Suspect]
     Active Substance: METHOTREXATE
     Indication: Metastases to skin
  70. METHOTREXATE [Suspect]
     Active Substance: METHOTREXATE
     Indication: Metastases to lung
  71. METHOTREXATE [Suspect]
     Active Substance: METHOTREXATE
     Indication: Metastases to central nervous system
  72. METHOTREXATE [Suspect]
     Active Substance: METHOTREXATE
     Indication: Chemotherapy
  73. METHOTREXATE [Suspect]
     Active Substance: METHOTREXATE
     Indication: Choriocarcinoma
     Dosage: UNK
     Route: 065
  74. METHOTREXATE [Suspect]
     Active Substance: METHOTREXATE
     Dosage: UNK, CYCLICAL
     Route: 065
  75. PACLITAXEL [Suspect]
     Active Substance: PACLITAXEL
     Indication: Choriocarcinoma
     Dosage: UNK
     Route: 065
  76. PACLITAXEL [Suspect]
     Active Substance: PACLITAXEL
     Dosage: UNK, CYCLICAL
     Route: 042
  77. PACLITAXEL [Suspect]
     Active Substance: PACLITAXEL
     Dosage: UNK, CYCLIC
     Route: 041
  78. PACLITAXEL [Suspect]
     Active Substance: PACLITAXEL
     Dosage: UNK
     Route: 042
  79. PACLITAXEL [Suspect]
     Active Substance: PACLITAXEL
     Dosage: UNK
     Route: 041
  80. DOXORUBICIN HYDROCHLORIDE [Suspect]
     Active Substance: DOXORUBICIN HYDROCHLORIDE
     Indication: Choriocarcinoma
     Dosage: 35.0 MG/M2, CYCLICAL
     Route: 065
  81. DOXORUBICIN HYDROCHLORIDE [Suspect]
     Active Substance: DOXORUBICIN HYDROCHLORIDE
     Dosage: 35.0 MG/M2
     Route: 065
  82. CYCLOPHOSPHAMIDE [Suspect]
     Active Substance: CYCLOPHOSPHAMIDE
     Indication: Metastatic choriocarcinoma
     Dosage: UNK, CYCLICAL
     Route: 065
  83. CYCLOPHOSPHAMIDE [Suspect]
     Active Substance: CYCLOPHOSPHAMIDE
     Indication: Choriocarcinoma
     Dosage: UNK
     Route: 065
  84. CYCLOPHOSPHAMIDE [Suspect]
     Active Substance: CYCLOPHOSPHAMIDE
     Dosage: UNK, CYCLICAL
     Route: 042
  85. CYCLOPHOSPHAMIDE [Suspect]
     Active Substance: CYCLOPHOSPHAMIDE
     Dosage: 2000.0 UNK, CYCLICAL
     Route: 042
  86. CYCLOPHOSPHAMIDE [Suspect]
     Active Substance: CYCLOPHOSPHAMIDE
     Indication: Metastatic choriocarcinoma
     Route: 042
  87. CYCLOPHOSPHAMIDE [Suspect]
     Active Substance: CYCLOPHOSPHAMIDE
     Indication: Metastases to skin
  88. CYCLOPHOSPHAMIDE [Suspect]
     Active Substance: CYCLOPHOSPHAMIDE
     Indication: Metastases to lung
  89. CYCLOPHOSPHAMIDE [Suspect]
     Active Substance: CYCLOPHOSPHAMIDE
     Indication: Metastases to central nervous system
  90. CYCLOPHOSPHAMIDE [Suspect]
     Active Substance: CYCLOPHOSPHAMIDE
     Indication: Choriocarcinoma
  91. TAXOL [Suspect]
     Active Substance: PACLITAXEL
     Indication: Choriocarcinoma
     Dosage: UNK, CYCLICAL
     Route: 042
  92. TAXOL [Suspect]
     Active Substance: PACLITAXEL
     Indication: Recurrent cancer
     Dosage: UNK
     Route: 041
  93. TAXOL [Suspect]
     Active Substance: PACLITAXEL
     Indication: Recurrent cancer
     Route: 065
  94. TAXOL [Suspect]
     Active Substance: PACLITAXEL
     Indication: Choriocarcinoma
  95. VINCRISTINE SULFATE [Suspect]
     Active Substance: VINCRISTINE SULFATE
     Indication: Metastatic choriocarcinoma
     Dosage: UNK, CYCLICAL
     Route: 065
  96. VINCRISTINE SULFATE [Suspect]
     Active Substance: VINCRISTINE SULFATE
     Indication: Choriocarcinoma
     Dosage: UNK
     Route: 065
  97. VINCRISTINE SULFATE [Suspect]
     Active Substance: VINCRISTINE SULFATE
     Indication: Metastases to skin
  98. VINCRISTINE SULFATE [Suspect]
     Active Substance: VINCRISTINE SULFATE
     Indication: Metastases to lung
  99. VINCRISTINE SULFATE [Suspect]
     Active Substance: VINCRISTINE SULFATE
     Indication: Metastases to central nervous system
  100. VINCRISTINE SULFATE [Suspect]
     Active Substance: VINCRISTINE SULFATE
     Indication: Chemotherapy
  101. TAXOTERE [Suspect]
     Active Substance: DOCETAXEL
     Indication: Invasive ductal breast carcinoma
     Route: 042
  102. TAXOTERE [Concomitant]
     Active Substance: DOCETAXEL
     Indication: Invasive ductal breast carcinoma
     Dosage: UNK, CYCLICAL
     Route: 065
  103. TAXOTERE [Concomitant]
     Active Substance: DOCETAXEL
     Dosage: UNK
  104. DOXORUBICIN HYDROCHLORIDE [Concomitant]
     Active Substance: DOXORUBICIN HYDROCHLORIDE
  105. DOXORUBICIN [Concomitant]
     Active Substance: DOXORUBICIN
     Indication: Invasive ductal breast carcinoma
     Dosage: 35.0 MG/M2

REACTIONS (4)
  - Acute myeloid leukaemia [Fatal]
  - Second primary malignancy [Fatal]
  - Product use in unapproved indication [Fatal]
  - Off label use [Fatal]
